FAERS Safety Report 13994234 (Version 1)
Quarter: 2017Q3

REPORT INFORMATION
  Report Type: Spontaneous
  Country: US (occurrence: US)
  Receive Date: 20170920
  Receipt Date: 20170920
  Transmission Date: 20171128
  Serious: Yes (Other)
  Sender: FDA-Public Use
  Company Number: None

PATIENT
  Age: 79 Year
  Sex: Male
  Weight: 92.25 kg

DRUGS (1)
  1. LEVOOFLOXIN 750 MG TAB AURO GENERIC FOR LEVAQUIN 750 MG [Suspect]
     Active Substance: LEVOFLOXACIN
     Indication: WOUND INFECTION
     Dosage: ?          QUANTITY:15 TABLET(S);?
     Route: 048
     Dates: start: 20170727, end: 20170729

REACTIONS (2)
  - Tendon rupture [None]
  - Muscle tightness [None]

NARRATIVE: CASE EVENT DATE: 20170731
